FAERS Safety Report 10521832 (Version 1)
Quarter: 2014Q4

REPORT INFORMATION
  Report Type: Spontaneous
  Country: US (occurrence: None)
  Receive Date: 20141014
  Receipt Date: 20141014
  Transmission Date: 20150528
  Serious: Yes (Other)
  Sender: FDA-Public Use
  Company Number: FK201403998

PATIENT
  Age: 68 Year
  Sex: Female
  Weight: 83 kg

DRUGS (2)
  1. OXALIPLATIN. [Suspect]
     Active Substance: OXALIPLATIN
     Indication: GASTRIC CANCER
     Dosage: 240 MG, CYCLICAL, INTRAVENOUS (NOT OTHERWISE SPECIFIED)
     Route: 042
     Dates: start: 20140722, end: 20140722
  2. XELODA [Concomitant]
     Active Substance: CAPECITABINE

REACTIONS (5)
  - Tongue oedema [None]
  - Laryngeal oedema [None]
  - Pain [None]
  - Joint lock [None]
  - Rash [None]

NARRATIVE: CASE EVENT DATE: 20140722
